FAERS Safety Report 6447191-9 (Version None)
Quarter: 2009Q4

REPORT INFORMATION
  Report Type: 
  Country: None (occurrence: None)
  Receive Date: 20091119
  Receipt Date: 20091105
  Transmission Date: 20100525
  Serious: Yes (Other)
  Sender: FDA-Public Use
  Company Number: US-SANOFI-AVENTIS-2009SA001933

PATIENT
  Age: 84 Year
  Sex: Male
  Weight: 89.79 kg

DRUGS (4)
  1. PLAVIX [Suspect]
     Route: 048
     Dates: start: 20090720
  2. COUMADIN [Concomitant]
  3. ASPIRIN [Concomitant]
  4. ALL OTHER THERAPEUTIC PRODUCTS [Concomitant]

REACTIONS (2)
  - EYE HAEMORRHAGE [None]
  - MACULAR DEGENERATION [None]
